FAERS Safety Report 24750778 (Version 3)
Quarter: 2025Q1

REPORT INFORMATION
  Report Type: Report from Study
  Country: US (occurrence: US)
  Receive Date: 20241218
  Receipt Date: 20250115
  Transmission Date: 20250408
  Serious: Yes (Hospitalization, Other)
  Sender: SANOFI AVENTIS
  Company Number: US-SA-2024SA373694

PATIENT
  Age: 62 Year
  Sex: Male
  Weight: 81.6 kg

DRUGS (5)
  1. DOCETAXEL [Suspect]
     Active Substance: DOCETAXEL
     Indication: Hormone-refractory prostate cancer
     Dosage: 75 MG/KG, Q3W
     Route: 042
     Dates: start: 20241114, end: 20241114
  2. DOCETAXEL [Suspect]
     Active Substance: DOCETAXEL
     Dosage: 75 MG/KG, Q3W
     Route: 042
     Dates: start: 20241204, end: 20241204
  3. PREDNISONE [Suspect]
     Active Substance: PREDNISONE
     Indication: Hormone-refractory prostate cancer
     Dosage: 5 MG, BID
     Route: 048
     Dates: start: 20241114, end: 20241204
  4. LORIGERLIMAB [Suspect]
     Active Substance: LORIGERLIMAB
     Indication: Hormone-refractory prostate cancer
     Dosage: 6 MG/KG, Q3W
     Route: 042
     Dates: start: 20241114, end: 20241114
  5. LORIGERLIMAB [Suspect]
     Active Substance: LORIGERLIMAB
     Dosage: 6 MG/KG, Q3W
     Route: 042
     Dates: start: 20241204, end: 20241204

REACTIONS (1)
  - Myasthenia gravis [Recovering/Resolving]

NARRATIVE: CASE EVENT DATE: 20241202
